FAERS Safety Report 6832194-2 (Version None)
Quarter: 2010Q3

REPORT INFORMATION
  Report Type: 
  Country: None (occurrence: None)
  Receive Date: 20100712
  Receipt Date: 20100702
  Transmission Date: 20110219
  Serious: Yes (Life-Threatening, Hospitalization)
  Sender: FDA-Public Use
  Company Number: JP-SANOFI-AVENTIS-2010SA038669

PATIENT
  Age: 73 Year
  Sex: Female
  Weight: 64 kg

DRUGS (12)
  1. LANTUS [Suspect]
     Indication: TYPE 2 DIABETES MELLITUS
     Dosage: ADMINISTERING IN EVENING
     Route: 058
     Dates: start: 20080711, end: 20090731
  2. AMARYL [Concomitant]
     Indication: TYPE 2 DIABETES MELLITUS
     Route: 048
     Dates: end: 20090601
  3. BUFORMIN HYDROCHLORIDE [Concomitant]
     Indication: TYPE 2 DIABETES MELLITUS
     Route: 048
     Dates: end: 20090601
  4. GLUCOBAY [Concomitant]
     Indication: TYPE 2 DIABETES MELLITUS
     Route: 048
  5. MELBIN [Concomitant]
     Indication: TYPE 2 DIABETES MELLITUS
     Route: 048
     Dates: start: 20090602
  6. MITIGLINIDE [Concomitant]
     Indication: TYPE 2 DIABETES MELLITUS
     Route: 048
  7. AMLODIN [Concomitant]
     Indication: HYPERTENSION
     Route: 048
     Dates: end: 20090731
  8. MICARDIS [Concomitant]
     Indication: HYPERTENSION
     Dosage: DOSAGE UNKNOWN
     Route: 048
     Dates: end: 20090731
  9. ONON [Concomitant]
     Dosage: DOSAGE UNKNOWN
     Route: 048
     Dates: end: 20090731
  10. THEO-DUR [Concomitant]
     Dosage: DOSAGE UNKNOWN
     Route: 048
     Dates: end: 20090731
  11. ALL OTHER THERAPEUTIC PRODUCTS [Concomitant]
     Indication: CONSTIPATION
     Dosage: DOSAGE UNKNOWN
     Route: 048
  12. PURSENNID /SCH/ [Concomitant]
     Indication: CONSTIPATION
     Route: 048

REACTIONS (3)
  - DYSPNOEA [None]
  - HYPOGLYCAEMIA [None]
  - MYOCARDIAL INFARCTION [None]
